FAERS Safety Report 22234878 (Version 2)
Quarter: 2023Q2

REPORT INFORMATION
  Report Type: Spontaneous
  Country: PT (occurrence: PT)
  Receive Date: 20230420
  Receipt Date: 20230425
  Transmission Date: 20230721
  Serious: Yes (Other)
  Sender: FDA-Public Use
  Company Number: PT-MLMSERVICE-20230407-4212629-1

PATIENT
  Age: 73 Year
  Sex: Female

DRUGS (3)
  1. METHYLPREDNISOLONE SODIUM SUCCINATE [Suspect]
     Active Substance: METHYLPREDNISOLONE SODIUM SUCCINATE
     Indication: Cerebral amyloid angiopathy
     Dosage: 1000 MG, DAILY
     Route: 042
  2. PREDNISOLONE [Suspect]
     Active Substance: PREDNISOLONE
     Indication: Cerebral amyloid angiopathy
     Dosage: 1 MG/KG, 1X/DAY
     Route: 048
  3. LEVETIRACETAM [Concomitant]
     Active Substance: LEVETIRACETAM
     Indication: Cerebral amyloid angiopathy
     Dosage: UNK

REACTIONS (2)
  - Substance-induced psychotic disorder [Recovering/Resolving]
  - Off label use [Unknown]
